FAERS Safety Report 17563326 (Version 2)
Quarter: 2020Q1

REPORT INFORMATION
  Report Type: Spontaneous
  Country: US (occurrence: US)
  Receive Date: 20200319
  Receipt Date: 20200320
  Transmission Date: 20200409
  Serious: No
  Sender: FDA-Public Use
  Company Number: US-TEVA-2020-US-1198836

PATIENT
  Age: 63 Year
  Sex: Male

DRUGS (14)
  1. JAKAFI [Concomitant]
     Active Substance: RUXOLITINIB
     Dosage: 50 MILLIGRAM DAILY;
     Route: 048
     Dates: start: 20171122
  2. JAKAFI [Concomitant]
     Active Substance: RUXOLITINIB
     Dosage: 25 MILLIGRAM DAILY;
     Route: 048
  3. JAKAFI [Concomitant]
     Active Substance: RUXOLITINIB
     Dosage: 25 MG QAM 20 MG QPM
     Route: 048
  4. JAKAFI [Concomitant]
     Active Substance: RUXOLITINIB
     Dosage: 30 MILLIGRAM DAILY;
     Route: 048
     Dates: start: 20171121
  5. JAKAFI [Concomitant]
     Active Substance: RUXOLITINIB
     Indication: POLYCYTHAEMIA VERA
     Dosage: 20 MILLIGRAM DAILY;
     Route: 048
     Dates: start: 20171122
  6. JAKAFI [Concomitant]
     Active Substance: RUXOLITINIB
     Dosage: 40 MG
     Route: 048
  7. JAKAFI [Concomitant]
     Active Substance: RUXOLITINIB
     Dosage: 20 MILLIGRAM DAILY;
     Route: 048
     Dates: start: 20171129, end: 201712
  8. JAKAFI [Concomitant]
     Active Substance: RUXOLITINIB
     Dosage: 30 MILLIGRAM DAILY;
     Route: 048
     Dates: start: 201712
  9. JAKAFI [Concomitant]
     Active Substance: RUXOLITINIB
     Dosage: 30 MG QAM; 16 MG QPM
     Route: 048
  10. AMOXICILLIN. [Suspect]
     Active Substance: AMOXICILLIN
     Indication: PRODUCT USED FOR UNKNOWN INDICATION
     Dates: start: 2017
  11. JAKAFI [Concomitant]
     Active Substance: RUXOLITINIB
     Dosage: 40 MILLIGRAM DAILY;
     Route: 048
  12. JAKAFI [Concomitant]
     Active Substance: RUXOLITINIB
     Dosage: 30 MILLIGRAM DAILY;
     Route: 048
  13. JAKAFI [Concomitant]
     Active Substance: RUXOLITINIB
     Dosage: 20 MILLIGRAM DAILY;
     Route: 048
  14. JAKAFI [Concomitant]
     Active Substance: RUXOLITINIB
     Dosage: 30 MILLIGRAM DAILY;
     Route: 048

REACTIONS (2)
  - Drug hypersensitivity [Not Recovered/Not Resolved]
  - Rash [Unknown]
